FAERS Safety Report 15385766 (Version 1)
Quarter: 2018Q3

REPORT INFORMATION
  Report Type: Spontaneous
  Country: US (occurrence: US)
  Receive Date: 20180914
  Receipt Date: 20180914
  Transmission Date: 20181010
  Serious: Yes (Other)
  Sender: FDA-Public Use
  Company Number: US-SA-2018SA255350

PATIENT
  Age: 52 Year
  Sex: Female

DRUGS (9)
  1. PERPHENAZINE. [Concomitant]
     Active Substance: PERPHENAZINE
  2. LITHIUM CARBONATE. [Concomitant]
     Active Substance: LITHIUM CARBONATE
  3. AUBAGIO [Suspect]
     Active Substance: TERIFLUNOMIDE
     Indication: MULTIPLE SCLEROSIS
     Dosage: 14 MG, QD
     Route: 048
     Dates: start: 20180406
  4. LIPITOR [Concomitant]
     Active Substance: ATORVASTATIN CALCIUM
  5. REMERON [Concomitant]
     Active Substance: MIRTAZAPINE
  6. PROZAC [Concomitant]
     Active Substance: FLUOXETINE HYDROCHLORIDE
  7. PREDNISONE. [Concomitant]
     Active Substance: PREDNISONE
  8. MELOXICAM. [Concomitant]
     Active Substance: MELOXICAM
  9. SEROQUEL [Concomitant]
     Active Substance: QUETIAPINE FUMARATE

REACTIONS (2)
  - Pain [Unknown]
  - Pneumonia [Unknown]
